FAERS Safety Report 5279022-7 (Version None)
Quarter: 2007Q1

REPORT INFORMATION
  Report Type: 
  Country: None (occurrence: None)
  Receive Date: 20070328
  Receipt Date: 20070124
  Transmission Date: 20070707
  Serious: No
  Sender: FDA-Public Use
  Company Number: US-AMGEN-KDL208334

PATIENT
  Sex: Female

DRUGS (4)
  1. NEULASTA [Suspect]
     Indication: CHEMOTHERAPY
     Dates: start: 20061101
  2. NEUPOGEN [Suspect]
     Dates: start: 20070101, end: 20070117
  3. CARBOPLATIN [Concomitant]
  4. ATIVAN [Concomitant]

REACTIONS (4)
  - AGITATION [None]
  - BONE PAIN [None]
  - INSOMNIA [None]
  - NERVOUSNESS [None]
